FAERS Safety Report 13511234 (Version 1)
Quarter: 2017Q2

REPORT INFORMATION
  Report Type: Spontaneous
  Country: US (occurrence: US)
  Receive Date: 20170503
  Receipt Date: 20170503
  Transmission Date: 20170830
  Serious: Yes (Death)
  Sender: FDA-Public Use
  Company Number: US-HLSUS-2017-US-000284

PATIENT
  Age: 36 Year
  Sex: 0

DRUGS (1)
  1. CLOZAPINE. [Suspect]
     Active Substance: CLOZAPINE
     Dates: start: 2015, end: 2015

REACTIONS (2)
  - Accidental exposure to product [Fatal]
  - Seizure [Fatal]

NARRATIVE: CASE EVENT DATE: 2015
